FAERS Safety Report 20936886 (Version 1)
Quarter: 2022Q2

REPORT INFORMATION
  Report Type: Other
  Country: AU (occurrence: None)
  Receive Date: 20220609
  Receipt Date: 20220609
  Transmission Date: 20220721
  Serious: No
  Sender: FDA-Public Use
  Company Number: AU-ROCHE-3113878

PATIENT
  Sex: Female

DRUGS (1)
  1. OCREVUS [Suspect]
     Active Substance: OCRELIZUMAB
     Indication: Relapsing-remitting multiple sclerosis
     Route: 041

REACTIONS (4)
  - COVID-19 [Recovered/Resolved]
  - Blood iron decreased [Recovered/Resolved]
  - Vitamin B12 decreased [Unknown]
  - Vitamin D decreased [Unknown]
